FAERS Safety Report 7146992-1 (Version None)
Quarter: 2010Q4

REPORT INFORMATION
  Report Type: 
  Country: None (occurrence: None)
  Receive Date: 20101209
  Receipt Date: 20100426
  Transmission Date: 20110411
  Serious: Yes (Death)
  Sender: FDA-Public Use
  Company Number: US-ACTELION-A-US2010-36182

PATIENT

DRUGS (14)
  1. BOSENTAN TABLET 62.5 MG US [Suspect]
     Indication: PULMONARY ARTERIAL HYPERTENSION
     Dosage: 62.5 MG, QD
     Route: 048
     Dates: start: 20091001, end: 20100321
  2. SPIRIVA [Concomitant]
  3. VARENICLINE [Concomitant]
  4. LISINOPRIL [Concomitant]
  5. CALCIUM CITRATE [Concomitant]
  6. XANAX [Concomitant]
  7. COREG [Concomitant]
  8. LEXIVA [Concomitant]
  9. PERCOCET [Concomitant]
  10. EPZICOM [Concomitant]
  11. ZOVIRAX [Concomitant]
  12. METOCLOPRAMIDE [Concomitant]
  13. CRESTOR [Concomitant]
  14. MAG-OX [Concomitant]

REACTIONS (1)
  - DEATH [None]
